FAERS Safety Report 10979570 (Version 3)
Quarter: 2015Q2

REPORT INFORMATION
  Report Type: Report from Study
  Country: JP (occurrence: JP)
  Receive Date: 20150402
  Receipt Date: 20150528
  Transmission Date: 20150821
  Serious: Yes (Death, Hospitalization)
  Sender: FDA-Public Use
  Company Number: JP-SA-2014SA167035

PATIENT
  Age: 78 Year
  Sex: Male
  Weight: 68.8 kg

DRUGS (5)
  1. PLAVIX [Suspect]
     Active Substance: CLOPIDOGREL BISULFATE
     Indication: PERIPHERAL ARTERIAL OCCLUSIVE DISEASE
     Route: 048
     Dates: start: 20130301, end: 20140423
  2. EQUA [Concomitant]
     Active Substance: VILDAGLIPTIN
     Route: 048
  3. CRESTOR [Concomitant]
     Active Substance: ROSUVASTATIN CALCIUM
     Route: 048
  4. CARDENALIN [Concomitant]
     Active Substance: DOXAZOSIN MESYLATE
     Route: 048
  5. NORVASC [Concomitant]
     Active Substance: AMLODIPINE BESYLATE
     Route: 048

REACTIONS (3)
  - Lung neoplasm malignant [Fatal]
  - Intermittent claudication [Not Recovered/Not Resolved]
  - Thrombosis in device [Not Recovered/Not Resolved]

NARRATIVE: CASE EVENT DATE: 20130729
